FAERS Safety Report 24650110 (Version 1)
Quarter: 2024Q4

REPORT INFORMATION
  Report Type: Spontaneous
  Country: DE (occurrence: DE)
  Receive Date: 20241122
  Receipt Date: 20241122
  Transmission Date: 20250115
  Serious: Yes (Other)
  Sender: ALEXION PHARMACEUTICALS
  Company Number: DE-AstraZeneca-CH-00748097A

PATIENT

DRUGS (4)
  1. ONDEXXYA [Suspect]
     Active Substance: ANDEXANET ALFA
     Indication: Cerebral haemorrhage
     Dosage: UNK
  2. ONDEXXYA [Suspect]
     Active Substance: ANDEXANET ALFA
     Dosage: UNK
  3. ONDEXXYA [Suspect]
     Active Substance: ANDEXANET ALFA
     Dosage: UNK
  4. ONDEXXYA [Suspect]
     Active Substance: ANDEXANET ALFA
     Dosage: UNK

REACTIONS (1)
  - Cerebral artery embolism [Unknown]
